FAERS Safety Report 7936861-9 (Version None)
Quarter: 2011Q4

REPORT INFORMATION
  Report Type: 
  Country: None (occurrence: None)
  Receive Date: 20111123
  Receipt Date: 20111123
  Transmission Date: 20120403
  Serious: Yes (Hospitalization)
  Sender: FDA-Public Use
  Company Number: None

PATIENT
  Age: 47 Year
  Sex: Male

DRUGS (2)
  1. LISINOPRIL [Suspect]
     Indication: HEPATIC CIRRHOSIS
     Dosage: 1 TABLET
     Route: 048
     Dates: start: 20110801, end: 20111031
  2. SPIRONOLACTONE [Concomitant]
     Dosage: 1 TABLET
     Route: 048

REACTIONS (1)
  - HYPERKALAEMIA [None]
